APPROVED DRUG PRODUCT: MESTINON
Active Ingredient: PYRIDOSTIGMINE BROMIDE
Strength: 60MG/5ML
Dosage Form/Route: SYRUP;ORAL
Application: N015193 | Product #001 | TE Code: AA
Applicant: BAUSCH HEALTH US LLC
Approved: Approved Prior to Jan 1, 1982 | RLD: Yes | RS: Yes | Type: RX